FAERS Safety Report 4352516-4 (Version None)
Quarter: 2004Q2

REPORT INFORMATION
  Report Type: 
  Country: None (occurrence: None)
  Receive Date: 20040409
  Receipt Date: 20031222
  Transmission Date: 20050107
  Serious: No
  Sender: FDA-Public Use
  Company Number: PHEH2003US05361

PATIENT
  Age: 1 Year
  Weight: 10 kg

DRUGS (3)
  1. ELIDEL [Suspect]
     Indication: ECZEMA
     Dosage: BID, TOPICAL
     Route: 061
     Dates: start: 20020901, end: 20030601
  2. IRON [Concomitant]
  3. AUGMENTIN PAEDIATRIC (CLAVULANATE POTASSIUM) [Concomitant]

REACTIONS (2)
  - ANAEMIA [None]
  - LYMPHADENOPATHY [None]
